FAERS Safety Report 10017379 (Version 3)
Quarter: 2014Q2

REPORT INFORMATION
  Report Type: Spontaneous
  Country: US (occurrence: US)
  Receive Date: 20140318
  Receipt Date: 20140421
  Transmission Date: 20141212
  Serious: No
  Sender: FDA-Public Use
  Company Number: US-PFIZER INC-2014077961

PATIENT
  Age: 62 Year
  Sex: Female
  Weight: 171 kg

DRUGS (2)
  1. CELEBREX [Suspect]
     Indication: ARTHRITIS
     Dosage: UNK
  2. LYRICA [Concomitant]
     Dosage: UNK

REACTIONS (1)
  - Gastritis [Unknown]
